FAERS Safety Report 24709600 (Version 1)
Quarter: 2024Q4

REPORT INFORMATION
  Report Type: Spontaneous
  Country: ES (occurrence: ES)
  Receive Date: 20241209
  Receipt Date: 20241209
  Transmission Date: 20250115
  Serious: Yes (Life-Threatening, Hospitalization, Other)
  Sender: Kenvue
  Company Number: None

PATIENT

DRUGS (2)
  1. IBUPROFEN [Suspect]
     Active Substance: IBUPROFEN
     Indication: Headache
     Route: 048
     Dates: start: 20241029, end: 20241031
  2. HEDERA HELIX FLOWERING TWIG\HERBALS [Suspect]
     Active Substance: HEDERA HELIX FLOWERING TWIG\HERBALS
     Indication: Cough
     Dosage: 1 BOTTLE OF 100
     Route: 048
     Dates: start: 20241029, end: 20241031

REACTIONS (2)
  - Drug reaction with eosinophilia and systemic symptoms [Recovering/Resolving]
  - Shock [Recovering/Resolving]

NARRATIVE: CASE EVENT DATE: 20241101
